FAERS Safety Report 4669002-4 (Version None)
Quarter: 2005Q2

REPORT INFORMATION
  Report Type: 
  Country: None (occurrence: None)
  Receive Date: 20050523
  Receipt Date: 20030611
  Transmission Date: 20051028
  Serious: Yes (Hospitalization)
  Sender: FDA-Public Use
  Company Number: JP-BRISTOL-MYERS SQUIBB COMPANY-12299111

PATIENT
  Age: 50 Year
  Sex: Male

DRUGS (8)
  1. ZERIT [Suspect]
     Indication: ACQUIRED IMMUNODEFICIENCY SYNDROME
     Route: 048
     Dates: start: 19970802, end: 20040924
  2. VIDEX EC [Suspect]
     Indication: ACQUIRED IMMUNODEFICIENCY SYNDROME
     Route: 048
     Dates: start: 20010605
  3. VIRACEPT [Suspect]
     Indication: ACQUIRED IMMUNODEFICIENCY SYNDROME
     Route: 048
     Dates: start: 19970802, end: 20040525
  4. VIDEX [Concomitant]
     Dosage: DOSAGE = 1.5 G FROM 15-OCT-1996 TO 02-AUG-1997 AND RE-STARTED 06-OCT-1997 AT 400 MG
     Route: 048
     Dates: start: 19961015, end: 20010605
  5. CROSS EIGHT M [Concomitant]
     Dosage: DOSAGE CHANGED TO 10,000 UNITS 01-APR-2001; DOSAGE CHANGED TO 5,000 UNITS 01-APR-2002.
     Route: 041
     Dates: start: 19950502
  6. EPIVIR [Concomitant]
     Indication: HIV INFECTION
     Route: 048
     Dates: start: 20040926
  7. INVIRASE [Concomitant]
     Route: 048
     Dates: start: 20040926
  8. STOCRIN [Concomitant]
     Indication: HIV INFECTION
     Route: 048
     Dates: start: 20040526, end: 20040925

REACTIONS (2)
  - GASTROINTESTINAL HAEMORRHAGE [None]
  - HAEMARTHROSIS [None]
